FAERS Safety Report 7000566-1 (Version None)
Quarter: 2010Q3

REPORT INFORMATION
  Report Type: 
  Country: None (occurrence: None)
  Receive Date: 20100920
  Receipt Date: 20100709
  Transmission Date: 20110219
  Serious: Yes (Life-Threatening, Other)
  Sender: FDA-Public Use
  Company Number: US-ASTRAZENECA-2010SE26499

PATIENT
  Age: 75 Year
  Sex: Male
  Weight: 64.4 kg

DRUGS (5)
  1. SEROQUEL [Suspect]
     Indication: INSOMNIA
     Route: 048
     Dates: start: 20100514, end: 20100604
  2. SEROQUEL [Suspect]
     Route: 048
     Dates: start: 20100501, end: 20100527
  3. PRILOSEC [Concomitant]
  4. CELEBREX [Concomitant]
     Indication: ARTHRALGIA
  5. XOPENEX [Concomitant]

REACTIONS (5)
  - AGITATION [None]
  - DEPRESSION [None]
  - DIZZINESS [None]
  - SUICIDAL IDEATION [None]
  - TREMOR [None]
